FAERS Safety Report 7076564-9 (Version None)
Quarter: 2010Q4

REPORT INFORMATION
  Report Type: 
  Country: None (occurrence: None)
  Receive Date: 20101101
  Receipt Date: 20101018
  Transmission Date: 20110411
  Serious: Yes (Life-Threatening, Hospitalization, Disabling, Other)
  Sender: FDA-Public Use
  Company Number: BR-PFIZER INC-2010131831

PATIENT
  Age: 76 Year
  Sex: Male
  Weight: 70 kg

DRUGS (10)
  1. FRONTAL [Suspect]
     Indication: DEMENTIA ALZHEIMER'S TYPE
     Dosage: 0.25 MG, 1X/DAY
     Dates: start: 20060101
  2. FRONTAL [Suspect]
     Indication: TREMOR
     Dosage: 0.25 MG, 1X/DAY
     Route: 048
     Dates: start: 20081018
  3. FRONTAL [Suspect]
     Dosage: 0.5 MG, 1X/DAY
     Route: 048
     Dates: start: 20101001, end: 20101001
  4. FRONTAL [Suspect]
     Dosage: 1 MG, 1X/DAY
     Route: 048
     Dates: start: 20101012, end: 20100101
  5. ASPIRIN [Concomitant]
     Indication: BLOOD DISORDER
     Dosage: UNK
  6. CLOPIDOGREL [Concomitant]
     Indication: BLOOD DISORDER
     Dosage: 75 MG, UNK
  7. CALTREN [Concomitant]
     Indication: HYPERTENSION
     Dosage: 10 MG, UNK
  8. PROPRANOLOL [Concomitant]
     Indication: HYPERTENSION
     Dosage: 10 MG, UNK
  9. AVODART [Concomitant]
     Indication: URINARY RETENTION
     Dosage: 0.5 MG, UNK
  10. DOXAZOSIN [Concomitant]
     Indication: URINARY RETENTION
     Dosage: UNK

REACTIONS (5)
  - CORONARY ARTERY OCCLUSION [None]
  - HAEMORRHAGE [None]
  - URETHRAL INJURY [None]
  - URINARY RETENTION [None]
  - WEIGHT DECREASED [None]
